FAERS Safety Report 7321994-0 (Version None)
Quarter: 2011Q1

REPORT INFORMATION
  Report Type: 
  Country: None (occurrence: None)
  Receive Date: 20110228
  Receipt Date: 20110214
  Transmission Date: 20110831
  Serious: Yes (Other)
  Sender: FDA-Public Use
  Company Number: US-CELGENEUS-163-21880-10123019

PATIENT
  Sex: Male
  Weight: 69.916 kg

DRUGS (13)
  1. FENOFIBRATE [Concomitant]
     Route: 048
  2. REVLIMID [Suspect]
     Route: 048
     Dates: start: 20101130, end: 20101213
  3. ZOMETA [Concomitant]
     Route: 065
     Dates: start: 20110104
  4. ANUSOL HC [Concomitant]
     Route: 054
     Dates: start: 20090914
  5. CHLORHEXIDINE GLUCONATE [Concomitant]
     Dosage: 10 CC
     Route: 048
     Dates: start: 20090914
  6. XYLOCAINE VISCOUS [Concomitant]
     Route: 048
  7. ASA [Concomitant]
     Route: 048
  8. DEXAMETHASONE [Concomitant]
     Route: 048
     Dates: start: 20101201
  9. FENTANYL [Concomitant]
     Dosage: 25MCG/HR
     Route: 062
     Dates: start: 20101214, end: 20110104
  10. HYDROCODONE-ACETAMINOPHEN [Concomitant]
     Dosage: 7.5-750MG
     Route: 048
     Dates: start: 20101013
  11. ANUSOL HC [Concomitant]
     Route: 054
     Dates: start: 20101012
  12. ATENOLOL [Concomitant]
     Route: 048
  13. HYDROXYZINE HCL [Concomitant]
     Route: 048
     Dates: start: 20101226

REACTIONS (6)
  - OEDEMA PERIPHERAL [None]
  - MYOPATHY [None]
  - MUSCULAR WEAKNESS [None]
  - MYELOPATHY [None]
  - ARTHRALGIA [None]
  - RASH GENERALISED [None]
